FAERS Safety Report 9149259 (Version 1)
Quarter: 2013Q1

REPORT INFORMATION
  Report Type: Spontaneous
  Country: US (occurrence: US)
  Receive Date: 20130308
  Receipt Date: 20130308
  Transmission Date: 20140127
  Serious: No
  Sender: FDA-Public Use
  Company Number: US-PFIZER INC-2013076839

PATIENT
  Age: 11 Year
  Sex: Female
  Weight: 25.4 kg

DRUGS (4)
  1. GENOTROPIN [Suspect]
     Indication: BODY HEIGHT ABNORMAL
     Dosage: 1.0 MG, 1X/DAY
     Dates: start: 20120921, end: 20130228
  2. GENOTROPIN [Suspect]
     Indication: UNDERWEIGHT
  3. GENOTROPIN [Suspect]
     Indication: GROWTH RETARDATION
  4. SYNTHROID [Concomitant]
     Indication: THYROID DISORDER
     Dosage: 80 MG, 1X/DAY

REACTIONS (1)
  - Skin discolouration [Recovered/Resolved]
